FAERS Safety Report 9228572 (Version 2)
Quarter: 2013Q4

REPORT INFORMATION
  Report Type: Spontaneous
  Country: NL (occurrence: NL)
  Receive Date: 20130412
  Receipt Date: 20131107
  Transmission Date: 20140711
  Serious: Yes (Other)
  Sender: FDA-Public Use
  Company Number: NL-JNJFOC-20130403551

PATIENT
  Sex: Female

DRUGS (2)
  1. REMICADE [Suspect]
     Indication: CROHN^S DISEASE
     Route: 042
     Dates: start: 20120819
  2. REMICADE [Suspect]
     Indication: CROHN^S DISEASE
     Route: 042

REACTIONS (2)
  - Erythema nodosum [Recovered/Resolved]
  - Exposure during pregnancy [Recovered/Resolved]
